FAERS Safety Report 23671218 (Version 2)
Quarter: 2024Q2

REPORT INFORMATION
  Report Type: Spontaneous
  Country: SI (occurrence: SI)
  Receive Date: 20240326
  Receipt Date: 20240402
  Transmission Date: 20240716
  Serious: Yes (Other)
  Sender: FDA-Public Use
  Company Number: SI-ADVANZ PHARMA-202403002416

PATIENT
  Age: 71 Year
  Sex: Female

DRUGS (2)
  1. OCALIVA [Suspect]
     Active Substance: OBETICHOLIC ACID
     Indication: Primary biliary cholangitis
     Dosage: UNK (FILM-COATED TABLETS)
     Route: 048
     Dates: start: 2020
  2. URSODIOL [Concomitant]
     Active Substance: URSODIOL
     Dosage: UNK

REACTIONS (3)
  - Hepatic cirrhosis [Unknown]
  - Urinary tract infection [Unknown]
  - Pruritus [Recovering/Resolving]
